FAERS Safety Report 8915998 (Version 1)
Quarter: 2012Q4

REPORT INFORMATION
  Report Type: 
  Country: US (occurrence: US)
  Receive Date: 20121119
  Receipt Date: 20121119
  Transmission Date: 20130627
  Serious: Yes (Hospitalization)
  Sender: FDA-Public Use
  Company Number: US-GLAXOSMITHKLINE-A1002283A

PATIENT
  Age: 25 Year
  Sex: Male

DRUGS (1)
  1. ARIXTRA [Suspect]
     Indication: PRODUCT USED FOR UNKNOWN INDICATION
     Dosage: 2.5MG Unknown
     Route: 065
     Dates: start: 20120917

REACTIONS (2)
  - Localised infection [Not Recovered/Not Resolved]
  - Musculoskeletal disorder [Unknown]
